FAERS Safety Report 16626620 (Version 1)
Quarter: 2019Q3

REPORT INFORMATION
  Report Type: Spontaneous
  Country: US (occurrence: US)
  Receive Date: 20190724
  Receipt Date: 20190724
  Transmission Date: 20191004
  Serious: No
  Sender: FDA-Public Use
  Company Number: US-MERZ NORTH AMERICA, INC.-19MRZ-00301

PATIENT
  Sex: Female

DRUGS (1)
  1. XEOMIN [Suspect]
     Active Substance: INCOBOTULINUMTOXINA
     Indication: SKIN COSMETIC PROCEDURE
     Dosage: 56 UNITS (ALSO REPORTED AS 24 UNITS)
     Dates: start: 20190708, end: 20190718

REACTIONS (4)
  - Swelling face [Unknown]
  - Paranasal sinus discomfort [Unknown]
  - Photophobia [Unknown]
  - Pain [Unknown]
